FAERS Safety Report 13110063 (Version 1)
Quarter: 2017Q1

REPORT INFORMATION
  Report Type: Spontaneous
  Country: US (occurrence: US)
  Receive Date: 20170112
  Receipt Date: 20170112
  Transmission Date: 20170428
  Serious: No
  Sender: FDA-Public Use
  Company Number: US-ROCHE-1253616

PATIENT

DRUGS (2)
  1. DORNASE ALFA [Suspect]
     Active Substance: DORNASE ALFA
     Indication: INFECTIOUS PLEURAL EFFUSION
     Dosage: FOR 3 DAYS
     Route: 034
  2. ACTILYSE [Suspect]
     Active Substance: ALTEPLASE
     Indication: INFECTIOUS PLEURAL EFFUSION
     Dosage: FOR 3 DAYS
     Route: 034

REACTIONS (1)
  - Haemorrhage [Recovered/Resolved]
